FAERS Safety Report 14150303 (Version 3)
Quarter: 2017Q4

REPORT INFORMATION
  Report Type: Spontaneous
  Country: AU (occurrence: AU)
  Receive Date: 20171101
  Receipt Date: 20171120
  Transmission Date: 20180321
  Serious: Yes (Other)
  Sender: FDA-Public Use
  Company Number: AU-PFIZER INC-2017467786

PATIENT
  Age: 69 Year
  Sex: Female
  Weight: 42 kg

DRUGS (1)
  1. ATORVASTATIN CALCIUM. [Suspect]
     Active Substance: ATORVASTATIN CALCIUM
     Indication: DISEASE RISK FACTOR
     Dosage: 40 MG, DAILY

REACTIONS (2)
  - Autoimmune hepatitis [Unknown]
  - Myositis [Unknown]
